FAERS Safety Report 7548634-X (Version None)
Quarter: 2011Q2

REPORT INFORMATION
  Report Type: 
  Country: None (occurrence: None)
  Receive Date: 20110615
  Receipt Date: 20110601
  Transmission Date: 20111010
  Serious: Yes (Other)
  Sender: FDA-Public Use
  Company Number: US-JNJFOC-20110301749

PATIENT
  Sex: Male
  Weight: 90.72 kg

DRUGS (15)
  1. OMEPRAZOLE [Concomitant]
     Route: 048
  2. REMICADE [Suspect]
     Indication: COLITIS ULCERATIVE
     Route: 042
     Dates: start: 20100316, end: 20100706
  3. REMICADE [Suspect]
     Route: 042
     Dates: start: 20110503
  4. IMURAN [Concomitant]
     Indication: COLITIS ULCERATIVE
     Route: 048
     Dates: start: 19920101
  5. CALCIUM WITH VITAMIN D [Concomitant]
     Dosage: CALCIUM 500/VITAMIN D 200; 2 TABS TWICE A DAY
     Route: 048
  6. FLUNISOLIDE [Concomitant]
     Dosage: 2 SPRAYS IN EACH NOSTRIL TWICE A DAY
  7. PREDNISONE [Concomitant]
     Route: 048
  8. MESALAMINE [Concomitant]
     Indication: COLITIS ULCERATIVE
     Route: 048
  9. PREDNISONE [Concomitant]
  10. DIPHENHYDRAMINE HCL [Concomitant]
     Indication: FLUSHING
     Dosage: 50 MG TWICE A DAY FOR 3 DAYS POST INFLIXIMAB INFUSION FOR FLUSHING SYMPTOMS
     Route: 048
  11. HYDROCORTISONE 1/PRAMOXINE 1% [Concomitant]
     Indication: HAEMORRHOIDS
     Dosage: INSERT 1 APPLICATORFUL INTO RECTUM AS NEEDED AFTER BOWEL MOVEMENT
  12. REMICADE [Suspect]
     Route: 042
     Dates: start: 20100831
  13. TESTOSTERONE ENANTHATE [Concomitant]
     Route: 030
  14. CETIRIZINE HCL [Concomitant]
     Route: 048
  15. REMICADE [Suspect]
     Route: 042
     Dates: start: 20050101, end: 20100119

REACTIONS (21)
  - NASAL CONGESTION [None]
  - BASAL CELL CARCINOMA [None]
  - FATIGUE [None]
  - PYREXIA [None]
  - PRURITUS [None]
  - ABDOMINAL PAIN [None]
  - EAR PAIN [None]
  - INFLUENZA [None]
  - NAUSEA [None]
  - COLITIS ULCERATIVE [None]
  - EUPHORIC MOOD [None]
  - ASTHENOPIA [None]
  - FLUSHING [None]
  - HEADACHE [None]
  - ARTHRALGIA [None]
  - GASTROOESOPHAGEAL REFLUX DISEASE [None]
  - NASAL SEPTUM DEVIATION [None]
  - HERPES ZOSTER [None]
  - HYPERTENSION [None]
  - INFLUENZA LIKE ILLNESS [None]
  - MYALGIA [None]
